FAERS Safety Report 9730008 (Version 3)
Quarter: 2015Q3

REPORT INFORMATION
  Report Type: Spontaneous
  Country: US (occurrence: US)
  Receive Date: 20131204
  Receipt Date: 20150806
  Transmission Date: 20151125
  Serious: Yes (Hospitalization, Disabling, Other)
  Sender: FDA-Public Use
  Company Number: US-009507513-1312USA001798

PATIENT
  Sex: Female

DRUGS (3)
  1. FOSAMAX [Suspect]
     Active Substance: ALENDRONATE SODIUM
     Indication: OSTEOARTHRITIS
     Dosage: 70 MG, UNK
     Route: 048
     Dates: start: 20040401, end: 20071220
  2. ONE-A-DAY WOMEN^S [Concomitant]
     Active Substance: VITAMINS
     Indication: PRODUCT USED FOR UNKNOWN INDICATION
     Dosage: ONE DAILY
     Route: 048
     Dates: start: 2000
  3. ALENDRONATE SODIUM. [Suspect]
     Active Substance: ALENDRONATE SODIUM
     Indication: OSTEOARTHRITIS
     Dosage: 70 MG, UNK
     Route: 048
     Dates: start: 20080313, end: 20100302

REACTIONS (23)
  - Low turnover osteopathy [Not Recovered/Not Resolved]
  - Osteoporosis [Not Recovered/Not Resolved]
  - Femur fracture [Recovered/Resolved]
  - Device extension damage [Unknown]
  - Extraskeletal ossification [Unknown]
  - Epidural injection [Unknown]
  - Cerebrovascular accident [Unknown]
  - Haemorrhagic anaemia [Unknown]
  - Osteoarthritis [Unknown]
  - Hypertension [Unknown]
  - Osteosclerosis [Unknown]
  - Intramedullary rod insertion [Unknown]
  - Spinal osteoarthritis [Unknown]
  - Off label use [Unknown]
  - Cancer surgery [Unknown]
  - Foot fracture [Unknown]
  - Osteoarthritis [Unknown]
  - Exostosis [Unknown]
  - Electrocardiogram ST-T segment abnormal [Unknown]
  - Malignant melanoma [Unknown]
  - Intervertebral disc degeneration [Unknown]
  - Constipation [Unknown]
  - Hyperlipidaemia [Unknown]

NARRATIVE: CASE EVENT DATE: 20070401
